FAERS Safety Report 8996105 (Version 1)
Quarter: 2013Q1

REPORT INFORMATION
  Report Type: Spontaneous
  Country: US (occurrence: US)
  Receive Date: 20130103
  Receipt Date: 20130103
  Transmission Date: 20140127
  Serious: No
  Sender: FDA-Public Use
  Company Number: US-ABBOTT-12P-163-0930307-00

PATIENT
  Sex: Female

DRUGS (3)
  1. SYNTHROID [Suspect]
     Indication: THYROID DISORDER
     Dates: start: 2001
  2. SYNTHROID [Suspect]
     Dosage: INCREASED DOSE BY INCREMENTS OF 12.5 MCG
     Dates: start: 201202
  3. SYNTHROID [Suspect]
     Route: 048
     Dates: start: 201204

REACTIONS (3)
  - Dizziness [Not Recovered/Not Resolved]
  - Unevaluable event [Recovering/Resolving]
  - Anxiety [Not Recovered/Not Resolved]
